FAERS Safety Report 7818237-8 (Version None)
Quarter: 2011Q4

REPORT INFORMATION
  Report Type: 
  Country: None (occurrence: None)
  Receive Date: 20111017
  Receipt Date: 20111003
  Transmission Date: 20120403
  Serious: Yes (Other)
  Sender: FDA-Public Use
  Company Number: US-BAYER-2011-095592

PATIENT
  Age: 36 Year
  Sex: Female
  Weight: 63 kg

DRUGS (1)
  1. ALEVE-D SINUS + COLD [Suspect]
     Dosage: 1 DF, ONCE
     Route: 048
     Dates: start: 20111001, end: 20111001

REACTIONS (8)
  - VOMITING [None]
  - PALPITATIONS [None]
  - HOT FLUSH [None]
  - FORMICATION [None]
  - UNEVALUABLE EVENT [None]
  - NAUSEA [None]
  - FEELING COLD [None]
  - DYSARTHRIA [None]
